FAERS Safety Report 20410390 (Version 1)
Quarter: 2022Q1

REPORT INFORMATION
  Report Type: Spontaneous
  Country: TW (occurrence: TW)
  Receive Date: 20220201
  Receipt Date: 20220201
  Transmission Date: 20220423
  Serious: Yes (Death, Hospitalization)
  Sender: FDA-Public Use
  Company Number: TW-IPSEN Group, Research and Development-2022-00859

PATIENT
  Age: 69 Year
  Sex: Male
  Weight: 70 kg

DRUGS (3)
  1. ONIVYDE [Suspect]
     Active Substance: IRINOTECAN HYDROCHLORIDE
     Indication: Pancreatic carcinoma
     Dosage: 43 MG/ 10 ML
     Route: 042
     Dates: start: 20211223, end: 20220105
  2. FLUOROURACIL [Concomitant]
     Active Substance: FLUOROURACIL
     Indication: Pancreatic carcinoma
     Dosage: UNK
     Route: 042
     Dates: start: 20211223, end: 20220105
  3. LEUCOVORIN [Concomitant]
     Active Substance: LEUCOVORIN
     Indication: Pancreatic carcinoma
     Dosage: UNK
     Route: 042
     Dates: start: 20211223, end: 20220105

REACTIONS (3)
  - Klebsiella infection [Fatal]
  - Respiratory failure [Fatal]
  - Interstitial lung disease [Unknown]

NARRATIVE: CASE EVENT DATE: 20220111
